FAERS Safety Report 11971807 (Version 1)
Quarter: 2016Q1

REPORT INFORMATION
  Report Type: Spontaneous
  Country: FR (occurrence: FR)
  Receive Date: 20160128
  Receipt Date: 20160128
  Transmission Date: 20160526
  Serious: Yes (Other)
  Sender: FDA-Public Use
  Company Number: FR-PFIZER INC-2016036360

PATIENT
  Age: 76 Year
  Sex: Female

DRUGS (1)
  1. AROMASINE [Suspect]
     Active Substance: EXEMESTANE
     Dosage: UNK
     Dates: start: 20150924, end: 20151117

REACTIONS (1)
  - Superinfection [Unknown]

NARRATIVE: CASE EVENT DATE: 20150929
